FAERS Safety Report 8548098-3 (Version None)
Quarter: 2012Q3

REPORT INFORMATION
  Report Type: 
  Country: None (occurrence: None)
  Receive Date: 20120730
  Receipt Date: 20120723
  Transmission Date: 20120928
  Serious: No
  Sender: FDA-Public Use
  Company Number: US-009507513-1207USA009040

PATIENT

DRUGS (4)
  1. NEUPOGEN [Concomitant]
  2. REBETOL [Suspect]
  3. VICTRELIS [Suspect]
     Indication: HEPATITIS C
     Dosage: 800 MG, TID
     Route: 048
     Dates: start: 20120329
  4. PEGASYS [Suspect]

REACTIONS (8)
  - FULL BLOOD COUNT DECREASED [None]
  - EMOTIONAL DISORDER [None]
  - DECREASED APPETITE [None]
  - RASH GENERALISED [None]
  - DYSPNOEA [None]
  - DRY MOUTH [None]
  - WHITE BLOOD CELL COUNT DECREASED [None]
  - ANAEMIA [None]
